FAERS Safety Report 24768175 (Version 1)
Quarter: 2024Q4

REPORT INFORMATION
  Report Type: Spontaneous
  Country: US (occurrence: None)
  Receive Date: 20241223
  Receipt Date: 20241223
  Transmission Date: 20250115
  Serious: No
  Sender: Public
  Company Number: None

PATIENT
  Age: 36 Year
  Sex: Male
  Weight: 81 kg

DRUGS (1)
  1. DEXAMETHASONE [Suspect]
     Active Substance: DEXAMETHASONE
     Indication: Upper respiratory tract infection
     Dosage: 10 MG/ML ONCE TIME INTRAMUSCULAR
     Route: 030
     Dates: start: 20241220, end: 20241220

REACTIONS (1)
  - Expired product administered [None]

NARRATIVE: CASE EVENT DATE: 20241220
